FAERS Safety Report 12563771 (Version 2)
Quarter: 2016Q3

REPORT INFORMATION
  Report Type: Report from Study
  Country: CA (occurrence: CA)
  Receive Date: 20160716
  Receipt Date: 20160818
  Transmission Date: 20161109
  Serious: Yes (Other)
  Sender: FDA-Public Use
  Company Number: CA-ABBVIE-16K-028-1674191-00

PATIENT
  Sex: Female

DRUGS (1)
  1. HUMIRA [Suspect]
     Active Substance: ADALIMUMAB
     Indication: CROHN^S DISEASE
     Route: 058
     Dates: start: 20140704, end: 20160506

REACTIONS (3)
  - Intestinal obstruction [Recovered/Resolved]
  - Intestinal fistula [Recovered/Resolved]
  - Abdominal adhesions [Recovered/Resolved]
